FAERS Safety Report 8318185-3 (Version None)
Quarter: 2012Q2

REPORT INFORMATION
  Report Type: 
  Country: None (occurrence: None)
  Receive Date: 20120427
  Receipt Date: 20120419
  Transmission Date: 20120825
  Serious: Yes (Death, Other)
  Sender: FDA-Public Use
  Company Number: US-MPIJNJ-2012-02347

PATIENT
  Sex: Female
  Weight: 66.213 kg

DRUGS (18)
  1. RITUXIMAB [Concomitant]
     Dosage: UNK
     Dates: start: 20100903
  2. HYDROCHLOROTHIAZIDE [Concomitant]
     Indication: PRODUCT USED FOR UNKNOWN INDICATION
  3. PREDNISONE [Concomitant]
     Dosage: UNK
     Dates: start: 20100903
  4. VELCADE [Suspect]
     Indication: MULTIPLE MYELOMA
     Dosage: UNK
     Route: 042
     Dates: start: 20100322, end: 20100726
  5. ZOCOR [Concomitant]
     Indication: PRODUCT USED FOR UNKNOWN INDICATION
  6. METFORMIN HCL [Concomitant]
     Indication: PRODUCT USED FOR UNKNOWN INDICATION
  7. POTASSIUM CHLORIDE [Concomitant]
     Indication: PRODUCT USED FOR UNKNOWN INDICATION
  8. ASPIRIN [Concomitant]
     Indication: PRODUCT USED FOR UNKNOWN INDICATION
  9. LISINOPRIL [Concomitant]
     Indication: PRODUCT USED FOR UNKNOWN INDICATION
  10. VINCRISTINE [Concomitant]
     Dosage: UNK
     Dates: start: 20100903
  11. RANITIDINE [Concomitant]
     Indication: PRODUCT USED FOR UNKNOWN INDICATION
  12. VITAMIN B6 [Concomitant]
     Indication: NEUROPATHY PERIPHERAL
  13. CYCLOPHOSPHAMIDE [Concomitant]
     Dosage: UNK
     Dates: start: 20100903
  14. DOXORUBICIN HCL [Concomitant]
     Dosage: UNK
     Dates: start: 20100903
  15. NORCO [Concomitant]
     Indication: PRODUCT USED FOR UNKNOWN INDICATION
  16. ZOLOFT [Concomitant]
     Indication: PRODUCT USED FOR UNKNOWN INDICATION
  17. COLACE [Concomitant]
     Indication: PRODUCT USED FOR UNKNOWN INDICATION
  18. NEURONTIN [Concomitant]
     Indication: NEUROPATHY PERIPHERAL

REACTIONS (4)
  - DIFFUSE LARGE B-CELL LYMPHOMA [None]
  - NEUROPATHY PERIPHERAL [None]
  - INSOMNIA [None]
  - ARTHRALGIA [None]
